FAERS Safety Report 18410193 (Version 2)
Quarter: 2020Q4

REPORT INFORMATION
  Report Type: Spontaneous
  Country: JP (occurrence: JP)
  Receive Date: 20201021
  Receipt Date: 20201106
  Transmission Date: 20210114
  Serious: Yes (Other)
  Sender: FDA-Public Use
  Company Number: JP-PFIZER INC-2020401959

PATIENT
  Age: 71 Year
  Sex: Female

DRUGS (2)
  1. THYRADIN S [Concomitant]
     Active Substance: LEVOTHYROXINE SODIUM
     Indication: THYROID HORMONES DECREASED
     Dosage: UNK
     Route: 048
     Dates: start: 20201012
  2. CORTRIL [Suspect]
     Active Substance: HYDROCORTISONE
     Indication: THYROID HORMONES DECREASED
     Dosage: UNK
     Route: 048
     Dates: start: 20201012

REACTIONS (1)
  - Blood pressure increased [Unknown]

NARRATIVE: CASE EVENT DATE: 20201012
